FAERS Safety Report 16390176 (Version 1)
Quarter: 2019Q2

REPORT INFORMATION
  Report Type: Spontaneous
  Country: US (occurrence: US)
  Receive Date: 20190604
  Receipt Date: 20190604
  Transmission Date: 20190711
  Serious: No
  Sender: FDA-Public Use
  Company Number: US-MAYNE PHARMA-2018MYN001500

PATIENT

DRUGS (2)
  1. BUDESONIDE. [Concomitant]
     Active Substance: BUDESONIDE
     Indication: PRODUCT USED FOR UNKNOWN INDICATION
     Dosage: UNK
  2. FLUOROURACIL. [Suspect]
     Active Substance: FLUOROURACIL
     Indication: SKIN DISORDER
     Dosage: UNK, BID
     Route: 061
     Dates: start: 201810

REACTIONS (1)
  - Application site scab [Not Recovered/Not Resolved]

NARRATIVE: CASE EVENT DATE: 201810
